FAERS Safety Report 8055445-8 (Version None)
Quarter: 2012Q1

REPORT INFORMATION
  Report Type: 
  Country: None (occurrence: None)
  Receive Date: 20120119
  Receipt Date: 20120110
  Transmission Date: 20120608
  Serious: Yes (Hospitalization)
  Sender: FDA-Public Use
  Company Number: FR-SANOFI-AVENTIS-2012SA001661

PATIENT
  Age: 73 Year
  Sex: Male

DRUGS (2)
  1. PREVISCAN [Suspect]
     Route: 048
     Dates: start: 20111122, end: 20111201
  2. LOVENOX [Suspect]
     Route: 058
     Dates: start: 20111122, end: 20111201

REACTIONS (3)
  - RENAL FAILURE ACUTE [None]
  - ABDOMINAL WALL HAEMATOMA [None]
  - SHOCK HAEMORRHAGIC [None]
